FAERS Safety Report 9214261 (Version 1)
Quarter: 2013Q2

REPORT INFORMATION
  Report Type: Spontaneous
  Country: FR (occurrence: FR)
  Receive Date: 20130405
  Receipt Date: 20130405
  Transmission Date: 20140414
  Serious: Yes (Hospitalization)
  Sender: FDA-Public Use
  Company Number: FR-PFIZER INC-2013104948

PATIENT
  Age: 62 Year
  Sex: Male

DRUGS (6)
  1. ALDACTONE [Suspect]
     Dosage: 2 DF, 1X/DAY
     Route: 048
     Dates: start: 20121128, end: 20121130
  2. LASILIX [Suspect]
     Dosage: 1 DF, 1X/DAY
     Route: 048
     Dates: start: 20121129, end: 20121130
  3. TIAPRIDAL [Interacting]
     Dosage: 100 MG, 3X/DAY
     Route: 048
     Dates: start: 20121129, end: 20121129
  4. ZOLPIDEM [Interacting]
     Dosage: 10 MG, 1X/DAY
     Route: 048
     Dates: start: 20121128, end: 20121130
  5. LANTUS [Concomitant]
     Indication: DIABETES MELLITUS
     Dosage: 44 - 46 IU DAILY
     Route: 058
  6. VITAMIN B1 B6 BAY [Concomitant]
     Dosage: 1 DF, DAILY

REACTIONS (4)
  - Confusional state [Recovered/Resolved]
  - Fall [Recovered/Resolved]
  - Dehydration [Recovered/Resolved]
  - Drug interaction [Recovered/Resolved]
